FAERS Safety Report 23547465 (Version 1)
Quarter: 2024Q1

REPORT INFORMATION
  Report Type: Other
  Country: ES (occurrence: US)
  Receive Date: 20240221
  Receipt Date: 20240221
  Transmission Date: 20240409
  Serious: Yes (Other)
  Sender: FDA-Public Use
  Company Number: ES-ALVOGEN-2024093107

PATIENT

DRUGS (12)
  1. TRAZODONE [Suspect]
     Active Substance: TRAZODONE HYDROCHLORIDE
     Indication: Suicide attempt
  2. LORAZEPAM [Suspect]
     Active Substance: LORAZEPAM
     Indication: Suicide attempt
  3. VENLAFAXINE [Suspect]
     Active Substance: VENLAFAXINE HYDROCHLORIDE
     Indication: Suicide attempt
  4. ACETAMINOPHEN [Suspect]
     Active Substance: ACETAMINOPHEN
     Indication: Suicide attempt
  5. ALPRAZOLAM [Suspect]
     Active Substance: ALPRAZOLAM
     Indication: Suicide attempt
  6. FLURAZEPAM [Suspect]
     Active Substance: FLURAZEPAM HYDROCHLORIDE
     Indication: Suicide attempt
  7. DICLOFENAC [Suspect]
     Active Substance: DICLOFENAC
     Indication: Suicide attempt
  8. BACLOFEN [Suspect]
     Active Substance: BACLOFEN
     Indication: Suicide attempt
  9. LURASIDONE [Suspect]
     Active Substance: LURASIDONE
     Indication: Suicide attempt
  10. CLOTHIAPINE [Suspect]
     Active Substance: CLOTHIAPINE
     Indication: Suicide attempt
  11. CLOMIPRAMINE [Suspect]
     Active Substance: CLOMIPRAMINE
     Indication: Suicide attempt
  12. COCAINE [Suspect]
     Active Substance: COCAINE
     Indication: Suicide attempt

REACTIONS (4)
  - Suicide attempt [Unknown]
  - Toxicity to various agents [Unknown]
  - Hypoglycaemia [Unknown]
  - Overdose [Unknown]
